FAERS Safety Report 4943243-0 (Version None)
Quarter: 2006Q1

REPORT INFORMATION
  Report Type: 
  Country: None (occurrence: None)
  Receive Date: 20060222
  Receipt Date: 20051107
  Transmission Date: 20060701
  Serious: Yes (Death, Hospitalization)
  Sender: FDA-Public Use
  Company Number: WSDF_00501

PATIENT
  Age: 46 Year
  Sex: Female
  Weight: 142.4295 kg

DRUGS (2)
  1. WINRHO SDF [Suspect]
     Indication: IDIOPATHIC THROMBOCYTOPENIC PURPURA
     Dosage: 70.4 MCG/KG ONCE IV
     Route: 042
     Dates: start: 20050727, end: 20050727
  2. PREDNISONE [Concomitant]

REACTIONS (4)
  - AGITATION [None]
  - CARDIO-RESPIRATORY ARREST [None]
  - PULMONARY EMBOLISM [None]
  - TREATMENT NONCOMPLIANCE [None]
